FAERS Safety Report 7389269-1 (Version None)
Quarter: 2011Q2

REPORT INFORMATION
  Report Type: 
  Country: None (occurrence: None)
  Receive Date: 20110401
  Receipt Date: 20110322
  Transmission Date: 20111010
  Serious: Yes (Hospitalization)
  Sender: FDA-Public Use
  Company Number: DK-SANOFI-AVENTIS-2011SA017491

PATIENT
  Age: 72 Year
  Sex: Male

DRUGS (3)
  1. OXALIPLATIN [Suspect]
     Indication: RECTAL CANCER
  2. AVASTIN [Suspect]
     Indication: RECTAL CANCER
  3. XELODA [Suspect]
     Indication: RECTAL CANCER

REACTIONS (1)
  - RECTAL PERFORATION [None]
